FAERS Safety Report 5619908-4 (Version None)
Quarter: 2008Q1

REPORT INFORMATION
  Report Type: 
  Country: None (occurrence: None)
  Receive Date: 20080208
  Receipt Date: 20071024
  Transmission Date: 20080703
  Serious: No
  Sender: FDA-Public Use
  Company Number: US-ABBOTT-07P-163-0422299-00

PATIENT
  Sex: Female

DRUGS (6)
  1. VICODIN [Suspect]
     Indication: PAIN
     Dosage: 5 MG/500 MG - 1/2- 1 TABLET EVERY 4 HOURS AS NEEDED
     Route: 048
     Dates: start: 20070819, end: 20070823
  2. VICODIN [Suspect]
  3. PREDNISONE ACETATE [Concomitant]
     Indication: HERPES ZOSTER
     Route: 048
     Dates: start: 20070819
  4. ACYCLOVIR [Concomitant]
     Indication: HERPES ZOSTER
     Route: 048
     Dates: start: 20070819
  5. PARACETAMOL [Concomitant]
     Indication: HERPES ZOSTER
     Route: 048
     Dates: start: 20070823
  6. PARACETAMOL [Concomitant]

REACTIONS (1)
  - CONFUSIONAL STATE [None]
